FAERS Safety Report 6807743-0 (Version None)
Quarter: 2010Q2

REPORT INFORMATION
  Report Type: 
  Country: None (occurrence: None)
  Receive Date: 20100629
  Receipt Date: 20081230
  Transmission Date: 20101027
  Serious: No
  Sender: FDA-Public Use
  Company Number: US-PFIZER INC-2009150358

PATIENT
  Sex: Female

DRUGS (1)
  1. SPIRONOLACTONE [Suspect]
     Indication: ACNE
     Dosage: 25 MG, 1X/DAY
     Route: 048
     Dates: start: 20081101

REACTIONS (1)
  - DRUG INEFFECTIVE FOR UNAPPROVED INDICATION [None]
